FAERS Safety Report 13955940 (Version 2)
Quarter: 2017Q3

REPORT INFORMATION
  Report Type: Report from Study
  Country: AU (occurrence: AU)
  Receive Date: 20170911
  Receipt Date: 20170929
  Transmission Date: 20171128
  Serious: Yes (Hospitalization, Other)
  Sender: FDA-Public Use
  Company Number: AU-REGENERON PHARMACEUTICALS, INC.-2017-21517

PATIENT

DRUGS (7)
  1. EYLEA [Suspect]
     Active Substance: AFLIBERCEPT
     Indication: DIABETIC RETINAL OEDEMA
     Dosage: UNK,ON LEFT EYE
     Route: 031
     Dates: start: 20170511
  2. AVASTIN [Concomitant]
     Active Substance: BEVACIZUMAB
     Dosage: UNK,FOR A FURTHER INTRAVITREAL AVASTIN ON 5 SEPT 2017
  3. AVASTIN [Concomitant]
     Active Substance: BEVACIZUMAB
     Dosage: UNK,ON RIGHT EYE
     Dates: start: 20170807
  4. AVASTIN [Concomitant]
     Active Substance: BEVACIZUMAB
     Indication: PRODUCT USED FOR UNKNOWN INDICATION
     Dosage: UNK
     Dates: start: 20170511
  5. EYLEA [Suspect]
     Active Substance: AFLIBERCEPT
     Dosage: UNK,ON LEFT EYE
     Route: 031
     Dates: start: 20170706
  6. AVASTIN [Concomitant]
     Active Substance: BEVACIZUMAB
     Dosage: UNK,ON RIGHT EYE
     Dates: start: 20170406
  7. EYLEA [Suspect]
     Active Substance: AFLIBERCEPT
     Dosage: UNK,ON LEFT EYE
     Route: 031
     Dates: start: 20170818

REACTIONS (5)
  - Vitreous floaters [Unknown]
  - Visual impairment [Unknown]
  - Vitreous haemorrhage [Recovering/Resolving]
  - Dupuytren^s contracture [Not Recovered/Not Resolved]
  - Depression [Unknown]

NARRATIVE: CASE EVENT DATE: 20170608
